FAERS Safety Report 21789348 (Version 4)
Quarter: 2023Q1

REPORT INFORMATION
  Report Type: Spontaneous
  Country: JP (occurrence: JP)
  Receive Date: 20221228
  Receipt Date: 20230131
  Transmission Date: 20230417
  Serious: Yes (Death, Life-Threatening, Disabling, Other)
  Sender: FDA-Public Use
  Company Number: JP-BRISTOL-MYERS SQUIBB COMPANY-BMS-2021-140147

PATIENT
  Age: 35 Year
  Sex: Male
  Weight: 64.7 kg

DRUGS (7)
  1. YERVOY [Suspect]
     Active Substance: IPILIMUMAB
     Indication: Malignant melanoma
     Dosage: UNK, ONE TIME DOSE
     Route: 041
     Dates: start: 20211115, end: 20211115
  2. OPDIVO [Suspect]
     Active Substance: NIVOLUMAB
     Indication: Malignant melanoma
     Dosage: UNK, ONE TIME DOSE
     Route: 041
     Dates: start: 20211115, end: 20211115
  3. BRAFTOVI [Suspect]
     Active Substance: ENCORAFENIB
     Indication: Product used for unknown indication
     Route: 048
  4. MEKTOVI [Suspect]
     Active Substance: BINIMETINIB
     Indication: Product used for unknown indication
     Route: 048
  5. CALONAL [Concomitant]
     Active Substance: ACETAMINOPHEN
     Indication: Malignant melanoma
     Dosage: 400MG?ONCE TIME
     Route: 048
     Dates: start: 20211115
  6. FYCOMPA [Concomitant]
     Active Substance: PERAMPANEL
     Indication: Malignant melanoma
     Dosage: 2 TIMES ADMINISTERED
     Route: 048
     Dates: start: 20210604
  7. METOCLOPRAMIDE [Concomitant]
     Active Substance: METOCLOPRAMIDE
     Indication: Malignant melanoma
     Dosage: 2 TIMES ADMINISTERED
     Route: 048
     Dates: start: 20211105

REACTIONS (2)
  - Immune-mediated enterocolitis [Not Recovered/Not Resolved]
  - Malignant neoplasm progression [Fatal]

NARRATIVE: CASE EVENT DATE: 20211118
